FAERS Safety Report 4445408-3 (Version None)
Quarter: 2004Q3

REPORT INFORMATION
  Report Type: 
  Country: None (occurrence: None)
  Receive Date: 20040730
  Receipt Date: 20030616
  Transmission Date: 20050211
  Serious: Yes (Other)
  Sender: FDA-Public Use
  Company Number: 2003-06-2598

PATIENT
  Age: 46 Year
  Sex: Female
  Weight: 64.8644 kg

DRUGS (14)
  1. INTRON A [Suspect]
     Indication: MALIGNANT MELANOMA STAGE III
     Dosage: 34 MU TIW IV; 23 MU TIW IV
     Route: 042
     Dates: start: 20030310, end: 20030324
  2. INTRON A [Suspect]
     Indication: MALIGNANT MELANOMA STAGE III
     Dosage: 34 MU TIW IV; 23 MU TIW IV
     Route: 042
     Dates: start: 20030331, end: 20030414
  3. INTRON A [Suspect]
     Indication: MALIGNANT MELANOMA STAGE III
     Dosage: 34 MU TIW IV; 23 MU TIW IV
     Route: 042
     Dates: start: 20030310
  4. INTRON A [Suspect]
     Indication: MALIGNANT MELANOMA STAGE III
     Dosage: 11.2 MU TIWSC; 17 MU TIWSC
     Route: 058
     Dates: start: 20030416, end: 20030520
  5. INTRON A [Suspect]
     Indication: MALIGNANT MELANOMA STAGE III
     Dosage: 11.2 MU TIWSC; 17 MU TIWSC
     Route: 058
     Dates: start: 20030501
  6. ASPIRIN [Concomitant]
  7. MULTI-VITAMINS [Concomitant]
  8. CALCIUM [Concomitant]
  9. EXTRA STRENGTH TYLENOL [Concomitant]
  10. IBUPROFEN [Concomitant]
  11. LORTAB [Concomitant]
  12. KEFLEX [Concomitant]
  13. ANALGESIC MOUTHWASH (BENADRYL/LIDOCAINE/KAOPECTATE/ETC) [Concomitant]
  14. NYASTIN [Concomitant]

REACTIONS (29)
  - ANOREXIA [None]
  - ARTHRALGIA [None]
  - ASTHENIA [None]
  - BARTHOLIN'S CYST [None]
  - BONE PAIN [None]
  - COUGH [None]
  - CYST [None]
  - DIARRHOEA [None]
  - DIZZINESS [None]
  - DYSGEUSIA [None]
  - DYSPEPSIA [None]
  - DYSPNOEA EXERTIONAL [None]
  - FATIGUE [None]
  - HEADACHE [None]
  - HEPATOTOXICITY [None]
  - LOSS OF CONSCIOUSNESS [None]
  - MYALGIA [None]
  - NAUSEA [None]
  - NEUTROPENIA [None]
  - OEDEMA PERIPHERAL [None]
  - ORAL CANDIDIASIS [None]
  - OROPHARYNGEAL SWELLING [None]
  - PALPITATIONS [None]
  - PHARYNGOLARYNGEAL PAIN [None]
  - PRURITUS [None]
  - PYREXIA [None]
  - THROMBOCYTOPENIA [None]
  - VISION BLURRED [None]
  - WEIGHT DECREASED [None]
